FAERS Safety Report 17545676 (Version 2)
Quarter: 2020Q3

REPORT INFORMATION
  Report Type: Spontaneous
  Country: US (occurrence: US)
  Receive Date: 20200316
  Receipt Date: 20200930
  Transmission Date: 20201102
  Serious: Yes (Other)
  Sender: FDA-Public Use
  Company Number: US-PFIZER INC-2020113299

PATIENT
  Age: 57 Year
  Sex: Female
  Weight: 76.66 kg

DRUGS (1)
  1. PRISTIQ EXTENDED?RELEASE [Suspect]
     Active Substance: DESVENLAFAXINE SUCCINATE
     Indication: MAJOR DEPRESSION
     Dosage: 100 MG, 1X/DAY (100 MG. ONCE DAILY BY MOUTH)
     Route: 048

REACTIONS (4)
  - Illness [Unknown]
  - Drug dependence [Unknown]
  - Weight increased [Unknown]
  - Dizziness [Unknown]
